FAERS Safety Report 7381613-4 (Version None)
Quarter: 2011Q1

REPORT INFORMATION
  Report Type: 
  Country: None (occurrence: None)
  Receive Date: 20110329
  Receipt Date: 20101005
  Transmission Date: 20110831
  Serious: Yes (Hospitalization)
  Sender: FDA-Public Use
  Company Number: US-BAYER-201013260NA

PATIENT
  Sex: Female
  Weight: 40.363 kg

DRUGS (8)
  1. CELEXA [Concomitant]
  2. VICODIN [Concomitant]
  3. PROZAC [Concomitant]
  4. PROMETHAZINE [Concomitant]
  5. ZANTAC [Concomitant]
  6. PREVACID [Concomitant]
  7. WELLBUTRIN [Concomitant]
  8. YASMIN [Suspect]
     Indication: ABDOMINAL PAIN UPPER
     Route: 048
     Dates: start: 20040101, end: 20090101

REACTIONS (5)
  - CHOLECYSTITIS ACUTE [None]
  - GALLBLADDER NON-FUNCTIONING [None]
  - NAUSEA [None]
  - VOMITING [None]
  - ABDOMINAL PAIN UPPER [None]
